FAERS Safety Report 9793500 (Version 2)
Quarter: 2014Q1

REPORT INFORMATION
  Report Type: Spontaneous
  Country: GB (occurrence: GB)
  Receive Date: 20140102
  Receipt Date: 20140124
  Transmission Date: 20141002
  Serious: Yes (Other)
  Sender: FDA-Public Use
  Company Number: GB-WATSON-2013-23732

PATIENT
  Age: 54 Year
  Sex: Female

DRUGS (2)
  1. PROPRANOLOL (UNKNOWN) [Suspect]
     Indication: PORTAL HYPERTENSION
     Dosage: 20 MG, BID
     Route: 048
     Dates: start: 201310
  2. PROPRANOLOL (UNKNOWN) [Suspect]
     Dosage: 10 MG, BID
     Route: 065

REACTIONS (2)
  - Vision blurred [Not Recovered/Not Resolved]
  - Somnolence [Unknown]
